FAERS Safety Report 7846684-7 (Version None)
Quarter: 2011Q4

REPORT INFORMATION
  Report Type: 
  Country: None (occurrence: None)
  Receive Date: 20111025
  Receipt Date: 20111014
  Transmission Date: 20120403
  Serious: Yes (Other)
  Sender: FDA-Public Use
  Company Number: PHHY2011JP91590

PATIENT
  Sex: Male

DRUGS (2)
  1. TEGRETOL [Suspect]
     Dosage: UNK
     Route: 048
  2. DEPAKENE [Concomitant]
     Route: 048

REACTIONS (2)
  - EPILEPSY [None]
  - NAUSEA [None]
